FAERS Safety Report 22871879 (Version 2)
Quarter: 2023Q4

REPORT INFORMATION
  Report Type: Spontaneous
  Country: US (occurrence: US)
  Receive Date: 20230828
  Receipt Date: 20231126
  Transmission Date: 20240109
  Serious: Yes (Other)
  Sender: FDA-Public Use
  Company Number: US-BRISTOL-MYERS SQUIBB COMPANY-2023-119672

PATIENT

DRUGS (1)
  1. NIVOLUMAB [Suspect]
     Active Substance: NIVOLUMAB
     Indication: Metastatic malignant melanoma

REACTIONS (4)
  - Tubulointerstitial nephritis [Unknown]
  - IgA nephropathy [Unknown]
  - Diabetes insipidus [Unknown]
  - Acute kidney injury [Unknown]
